FAERS Safety Report 16132536 (Version 2)
Quarter: 2019Q3

REPORT INFORMATION
  Report Type: Report from Study
  Country: None (occurrence: DE)
  Receive Date: 20190329
  Receipt Date: 20190803
  Transmission Date: 20191004
  Serious: Yes (Hospitalization)
  Sender: FDA-Public Use
  Company Number: DE-ABBVIE-19K-062-2707545-00

PATIENT
  Age: 58 Year
  Sex: Male

DRUGS (3)
  1. HUMIRA [Suspect]
     Active Substance: ADALIMUMAB
     Indication: RHEUMATOID ARTHRITIS
     Route: 058
     Dates: start: 201402, end: 201812
  2. MTX [Concomitant]
     Active Substance: METHOTREXATE SODIUM
     Indication: PRODUCT USED FOR UNKNOWN INDICATION
     Dates: start: 2015, end: 2015
  3. MTX [Concomitant]
     Active Substance: METHOTREXATE SODIUM
     Dates: start: 2015, end: 2015

REACTIONS (2)
  - Nephrolithiasis [Recovered/Resolved]
  - Urinary tract infection pseudomonal [Recovered/Resolved]

NARRATIVE: CASE EVENT DATE: 20180713
